FAERS Safety Report 9342826 (Version 3)
Quarter: 2013Q3

REPORT INFORMATION
  Report Type: Spontaneous
  Country: US (occurrence: US)
  Receive Date: 20130611
  Receipt Date: 20130821
  Transmission Date: 20140515
  Serious: No
  Sender: FDA-Public Use
  Company Number: US-PFIZER INC-2013171742

PATIENT
  Sex: Male

DRUGS (2)
  1. CHANTIX [Suspect]
     Dosage: 0.5 MG, UNK (STARTER PACK)
  2. CHANTIX [Suspect]
     Dosage: 1 MG, UNK (STARTER PACK)

REACTIONS (6)
  - Headache [Unknown]
  - Lethargy [Unknown]
  - Asthenia [Unknown]
  - Feeling abnormal [Unknown]
  - Disturbance in attention [Unknown]
  - Lower extremity mass [Recovered/Resolved]
